FAERS Safety Report 18085947 (Version 1)
Quarter: 2020Q3

REPORT INFORMATION
  Report Type: Spontaneous
  Country: US (occurrence: US)
  Receive Date: 20200728
  Receipt Date: 20200728
  Transmission Date: 20201103
  Serious: Yes (Death)
  Sender: FDA-Public Use
  Company Number: None

PATIENT
  Age: 63 Year
  Sex: Male
  Weight: 99.8 kg

DRUGS (18)
  1. DEXAMETHASONE 6 MG IV ONCE DAILY [Concomitant]
     Dates: start: 20200710, end: 20200724
  2. CHOLECALCIFEROL 2, 0000 UNITS PO DAILY [Concomitant]
     Dates: start: 20200717, end: 20200727
  3. CLOPIDOGREL 75 MG PO ONCE DAILY [Concomitant]
     Dates: start: 20200711, end: 20200727
  4. CYANOCOBALAMIN 1,000 MCG PO ONCE DAILY [Concomitant]
     Dates: start: 20200711, end: 20200727
  5. ENOXAPARIN 100 MG SQ Q12HR [Concomitant]
     Dates: start: 20200717, end: 20200727
  6. ATORVASTATIN 80 MG PO HS [Concomitant]
     Dates: start: 20200711, end: 20200726
  7. FAMOTIDINE 10 MG PO ONCE DAILY [Concomitant]
     Dates: start: 20200711, end: 20200717
  8. AZITHROMYCIN 500 IV X 1, THEN 250 MG PO ONCE DAILY [Concomitant]
     Dates: start: 20200710, end: 20200722
  9. CEFEPIME 1 GM IV Q6HR [Concomitant]
     Dates: start: 20200710, end: 20200723
  10. FAMOTIDINE 20 MG PO ONCE DAILY [Concomitant]
     Dates: start: 20200717, end: 20200727
  11. ASPIRIN 81 MG PO DAILY [Concomitant]
     Dates: start: 20200711, end: 20200727
  12. THIAMINE 100 MG PO ONCE DAILY [Concomitant]
     Dates: start: 20200717, end: 20200727
  13. ZINC SULFATE 220 MG PO DAILY [Concomitant]
     Dates: start: 20200717, end: 20200723
  14. REMDESIVIR. [Suspect]
     Active Substance: REMDESIVIR
     Indication: COVID-19 PNEUMONIA
     Route: 042
     Dates: start: 20200711, end: 20200715
  15. MEROPENEM 500 MG IV RENALLY DOSED [Concomitant]
     Dates: start: 20200723, end: 20200727
  16. CONVALESCENT PLASMA [Concomitant]
     Active Substance: HUMAN PLASMA
     Dates: start: 20200712, end: 20200712
  17. ASCORBIC ACID 1000 MG PO Q12H [Concomitant]
     Dates: start: 20200717, end: 20200727
  18. ENOXAPARIN 40 MG SQ Q12HR [Concomitant]
     Dates: start: 20200710

REACTIONS (7)
  - Multiple organ dysfunction syndrome [None]
  - Cardiac arrest [None]
  - Hypoxia [None]
  - Respiratory failure [None]
  - Metabolic acidosis [None]
  - Hypotension [None]
  - Haemodialysis [None]

NARRATIVE: CASE EVENT DATE: 20200727
